FAERS Safety Report 23357621 (Version 1)
Quarter: 2024Q1

REPORT INFORMATION
  Report Type: Spontaneous
  Country: US (occurrence: US)
  Receive Date: 20240102
  Receipt Date: 20240102
  Transmission Date: 20240410
  Serious: Yes (Hospitalization)
  Sender: FDA-Public Use
  Company Number: US-TEVA-VS-3139120

PATIENT
  Age: 62 Year

DRUGS (7)
  1. AUSTEDO [Suspect]
     Active Substance: DEUTETRABENAZINE
     Indication: Tardive dyskinesia
     Route: 065
     Dates: start: 20231009
  2. DONEPEZIL [Concomitant]
     Active Substance: DONEPEZIL
  3. TRAZODONE [Concomitant]
     Active Substance: TRAZODONE HYDROCHLORIDE
  4. QUETIAPINE [Concomitant]
     Active Substance: QUETIAPINE
  5. BUPROPION [Concomitant]
     Active Substance: BUPROPION
  6. LINZESS [Concomitant]
     Active Substance: LINACLOTIDE
  7. OXCARBAZEPINE [Concomitant]
     Active Substance: OXCARBAZEPINE

REACTIONS (2)
  - Suicidal ideation [Unknown]
  - Affective disorder [Unknown]
